FAERS Safety Report 8114770-2 (Version None)
Quarter: 2012Q1

REPORT INFORMATION
  Report Type: 
  Country: None (occurrence: None)
  Receive Date: 20120206
  Receipt Date: 20120127
  Transmission Date: 20120608
  Serious: Yes (Hospitalization)
  Sender: FDA-Public Use
  Company Number: US-US-EMD SERONO, INC.-7015463

PATIENT
  Sex: Female

DRUGS (5)
  1. ONDANSETRON HCL [Concomitant]
     Indication: NAUSEA
     Dates: start: 20100101, end: 20100101
  2. REBIF [Suspect]
     Indication: MULTIPLE SCLEROSIS
     Route: 058
     Dates: start: 20100715, end: 20101117
  3. IBUPROFEN (ADVIL) [Concomitant]
     Indication: PREMEDICATION
  4. SUMATRIPTAN [Concomitant]
     Indication: HEADACHE
  5. PHENERGAN [Concomitant]
     Dates: start: 20100801

REACTIONS (5)
  - ASTHENIA [None]
  - MULTIPLE SCLEROSIS RELAPSE [None]
  - MIGRAINE [None]
  - HEPATIC ENZYME INCREASED [None]
  - INJECTION SITE ERYTHEMA [None]
